FAERS Safety Report 9547403 (Version 1)
Quarter: 2013Q3

REPORT INFORMATION
  Report Type: Spontaneous
  Country: US (occurrence: US)
  Receive Date: 20130924
  Receipt Date: 20130924
  Transmission Date: 20140515
  Serious: Yes (Other)
  Sender: FDA-Public Use
  Company Number: PHHY2013US103593

PATIENT
  Age: 64 Year
  Sex: Female

DRUGS (6)
  1. PROPOFOL [Suspect]
     Indication: INDUCTION OF ANAESTHESIA
     Dosage: 200 MG, (2.3 MG/KG)
  2. RIFAMPICIN [Interacting]
     Indication: INFECTION PROPHYLAXIS
     Dosage: 600 MG TO BE TAKEN THE NIGHT BEFORE AND 2 HOURS BEFORE SURGERY
  3. MIDAZOLAM [Concomitant]
  4. FENTANYL [Concomitant]
  5. SUXAMETHONIUM CHLORIDE [Concomitant]
  6. EPINEPHRINE [Suspect]

REACTIONS (3)
  - Hypotension [Recovering/Resolving]
  - Heart rate increased [Unknown]
  - Drug interaction [Unknown]
